FAERS Safety Report 7235723-2 (Version None)
Quarter: 2011Q1

REPORT INFORMATION
  Report Type: 
  Country: None (occurrence: None)
  Receive Date: 20110120
  Receipt Date: 20110111
  Transmission Date: 20110831
  Serious: Yes (Hospitalization)
  Sender: FDA-Public Use
  Company Number: PHHY2011US03123

PATIENT
  Sex: Female

DRUGS (1)
  1. SANDIMMUNE [Suspect]
     Indication: BLEPHARITIS
     Dosage: 175 MG, QD
     Route: 048

REACTIONS (2)
  - DEHYDRATION [None]
  - EYE SWELLING [None]
